FAERS Safety Report 9323877 (Version 3)
Quarter: 2013Q3

REPORT INFORMATION
  Report Type: Report from Study
  Country: JP (occurrence: JP)
  Receive Date: 20130603
  Receipt Date: 20130702
  Transmission Date: 20140515
  Serious: Yes (Hospitalization)
  Sender: FDA-Public Use
  Company Number: JP-PFIZER INC-2013157159

PATIENT
  Age: 58 Year
  Sex: Male
  Weight: 98 kg

DRUGS (15)
  1. EPLERENONE [Suspect]
     Indication: CARDIAC FAILURE CHRONIC
     Dosage: UNK
     Route: 048
     Dates: start: 20130418, end: 20130517
  2. EPLERENONE [Suspect]
     Dosage: UNK
     Route: 048
     Dates: start: 20130518
  3. ARTIST [Concomitant]
     Indication: CARDIAC FAILURE CHRONIC
     Dosage: 2.5 MG, 2X/DAY
     Route: 048
  4. ARTIST [Concomitant]
     Dosage: 1.25 MG, 2X/DAY
     Route: 048
  5. SIGMART [Concomitant]
     Indication: MYOCARDIAL INFARCTION
     Dosage: 5 MG, 3X/DAY
     Route: 048
  6. LASIX [Concomitant]
     Indication: CARDIAC FAILURE CHRONIC
     Dosage: 30 MG, 2X/DAY
     Route: 048
  7. PANALDINE [Concomitant]
     Indication: MYOCARDIAL INFARCTION
     Dosage: 100 MG, 2X/DAY
     Route: 048
  8. BAYASPIRIN [Concomitant]
     Indication: MYOCARDIAL INFARCTION
     Dosage: 100 MG, 1X/DAY
     Route: 048
  9. ZETIA [Concomitant]
     Indication: HYPERCHOLESTEROLAEMIA
     Dosage: 10 MG, 1X/DAY
     Route: 048
  10. MAGMITT [Concomitant]
     Indication: CONSTIPATION
     Dosage: 330 MG, 3X/DAY
     Route: 048
  11. LIPITOR [Concomitant]
     Indication: HYPERCHOLESTEROLAEMIA
     Dosage: 10 MG, 1X/DAY
     Route: 048
  12. PARIET [Concomitant]
     Indication: GASTRIC POLYPS
     Dosage: 10 MG, 1X/DAY
     Route: 048
  13. GLIMEPIRIDE [Concomitant]
     Indication: DIABETES MELLITUS
     Dosage: 0.5 MG, 2X/DAY
     Route: 048
  14. METGLUCO [Concomitant]
     Indication: DIABETES MELLITUS
     Dosage: 750 MG, 3X/DAY
     Route: 048
  15. NESINA [Concomitant]
     Indication: DIABETES MELLITUS
     Dosage: 50 MG, 1X/DAY
     Route: 048

REACTIONS (1)
  - Chest discomfort [Recovered/Resolved]
